FAERS Safety Report 19128843 (Version 3)
Quarter: 2022Q1

REPORT INFORMATION
  Report Type: Spontaneous
  Country: US (occurrence: US)
  Receive Date: 20210413
  Receipt Date: 20220322
  Transmission Date: 20220423
  Serious: No
  Sender: FDA-Public Use
  Company Number: US-ALLERGAN-2106112US

PATIENT
  Sex: Male

DRUGS (13)
  1. COMBIGAN [Suspect]
     Active Substance: BRIMONIDINE TARTRATE\TIMOLOL MALEATE
     Indication: Pigmentary glaucoma
     Dosage: 2 GTT, BID, IN THE MORNING AND IN THE EVENING
     Route: 047
     Dates: start: 202003, end: 20210312
  2. COMBIGAN [Suspect]
     Active Substance: BRIMONIDINE TARTRATE\TIMOLOL MALEATE
     Dosage: 2 GTT, BID
     Route: 047
     Dates: start: 20200220
  3. LUMIGAN [Suspect]
     Active Substance: BIMATOPROST
     Indication: Pigmentary glaucoma
     Dosage: 2 GTT, QHS
     Route: 047
     Dates: start: 20200220
  4. LUMIGAN [Suspect]
     Active Substance: BIMATOPROST
     Dosage: 2 GTT, QHS
     Route: 047
     Dates: start: 202003
  5. ROCKLATAN [Concomitant]
     Active Substance: LATANOPROST\NETARSUDIL MESYLATE
     Indication: Pigmentary glaucoma
     Dosage: UNK
     Route: 047
     Dates: start: 20200220
  6. LISINOPRIL [Concomitant]
     Active Substance: LISINOPRIL
     Indication: Hypertension
  7. SIMVASTATIN [Concomitant]
     Active Substance: SIMVASTATIN
     Indication: Blood cholesterol increased
  8. CLOPIDOGREL [Concomitant]
     Active Substance: CLOPIDOGREL BISULFATE
  9. METOPROLOL [Concomitant]
     Active Substance: METOPROLOL
  10. TAMSULOSIN [Concomitant]
     Active Substance: TAMSULOSIN
  11. IPRATROPIUM [Concomitant]
     Active Substance: IPRATROPIUM
     Route: 045
  12. Generic Avadart [Concomitant]
  13. Generic Flomax [Concomitant]

REACTIONS (13)
  - Eyelid skin dryness [Not Recovered/Not Resolved]
  - Skin burning sensation [Not Recovered/Not Resolved]
  - Eyelid exfoliation [Not Recovered/Not Resolved]
  - Periorbital swelling [Not Recovered/Not Resolved]
  - Dry skin [Unknown]
  - Incorrect dose administered [Unknown]
  - Accidental exposure to product [Unknown]
  - Lacrimation increased [Not Recovered/Not Resolved]
  - Eye irritation [Not Recovered/Not Resolved]
  - Swelling of eyelid [Not Recovered/Not Resolved]
  - Erythema of eyelid [Not Recovered/Not Resolved]
  - Ocular hyperaemia [Not Recovered/Not Resolved]
  - Eye pain [Not Recovered/Not Resolved]

NARRATIVE: CASE EVENT DATE: 20200101
